FAERS Safety Report 14027806 (Version 22)
Quarter: 2020Q2

REPORT INFORMATION
  Report Type: Spontaneous
  Country: US (occurrence: US)
  Receive Date: 20170929
  Receipt Date: 20200501
  Transmission Date: 20200713
  Serious: Yes (Hospitalization, Other)
  Sender: FDA-Public Use
  Company Number: US-PFIZER INC-2017419766

PATIENT
  Age: 76 Year
  Sex: Female
  Weight: 100 kg

DRUGS (21)
  1. WARFARIN [Concomitant]
     Active Substance: WARFARIN
     Indication: ATRIAL FIBRILLATION
     Dosage: 4 MG, DAILY (MAY VARY MONTH TO MONTH)
     Dates: start: 2000
  2. VITAMIN D3 [Concomitant]
     Active Substance: CHOLECALCIFEROL
     Dosage: UNK
     Dates: start: 2015
  3. PROBIOTIC [Concomitant]
     Active Substance: PROBIOTICS NOS
     Dosage: UNK, DAILY
     Dates: start: 2010
  4. FLUTICASONE. [Concomitant]
     Active Substance: FLUTICASONE
     Dosage: UNK
     Route: 045
  5. IBRANCE [Suspect]
     Active Substance: PALBOCICLIB
     Dosage: 100 MG, CYCLIC (ONCE A DAY FOR 21 DAYS)
     Dates: start: 20170612, end: 2017
  6. PROBIOTIC [Concomitant]
     Active Substance: PROBIOTICS NOS
     Dosage: UNK
     Dates: start: 2015
  7. CALCIUM [Concomitant]
     Active Substance: CALCIUM
     Dosage: UNK, DAILY
     Dates: start: 2010
  8. IBRANCE [Suspect]
     Active Substance: PALBOCICLIB
     Dosage: 100 MG, CYCLIC (FOR 21 DAYS A MONTH)
     Dates: start: 201707
  9. LETROZOLE. [Suspect]
     Active Substance: LETROZOLE
     Indication: BREAST CANCER METASTATIC
     Dosage: 2.5 MG, DAILY (EVERYDAY)
     Dates: start: 20170612
  10. VITAMIN D3 [Concomitant]
     Active Substance: CHOLECALCIFEROL
     Dosage: UNK, DAILY
     Dates: start: 2010
  11. VITAMIN D3 [Concomitant]
     Active Substance: CHOLECALCIFEROL
     Dosage: UNK
     Dates: start: 2012
  12. LEVOTHYROXIN [Concomitant]
     Active Substance: LEVOTHYROXINE
     Indication: THYROID DISORDER
     Dosage: 0.05 MG, DAILY
     Dates: start: 2012
  13. LEVOTHYROXIN [Concomitant]
     Active Substance: LEVOTHYROXINE
     Dosage: 50 MG, UNK
     Dates: start: 2014
  14. CALCIUM [Concomitant]
     Active Substance: CALCIUM
     Dosage: UNK
     Dates: start: 2000
  15. COENZYME Q10 [Concomitant]
     Active Substance: UBIDECARENONE
     Dosage: UNK, DAILY
     Dates: start: 2010, end: 201712
  16. WARFARIN [Concomitant]
     Active Substance: WARFARIN
     Dosage: UNK, DAILY (VARIES FROM 2 TO 4MG)
     Dates: start: 2010
  17. PROBIOTIC [Concomitant]
     Active Substance: PROBIOTICS NOS
     Dosage: UNK
     Dates: start: 2012
  18. COUMADIN [Concomitant]
     Active Substance: WARFARIN SODIUM
     Dosage: 3 MG, DAILY
  19. CALCIUM [Concomitant]
     Active Substance: CALCIUM
     Dosage: UNK
     Dates: start: 2012
  20. IBRANCE [Suspect]
     Active Substance: PALBOCICLIB
     Indication: BREAST CANCER METASTATIC
     Dosage: 100 MG, CYCLIC (FOR 21 DAYS A MONTH)
     Dates: start: 2016
  21. ALBUTEROL SULFATE. [Concomitant]
     Active Substance: ALBUTEROL SULFATE
     Dosage: UNK

REACTIONS (47)
  - Insomnia [Recovered/Resolved]
  - Feeling abnormal [Recovering/Resolving]
  - Abnormal faeces [Unknown]
  - Pain in extremity [Unknown]
  - Musculoskeletal pain [Unknown]
  - Nausea [Unknown]
  - Gait disturbance [Unknown]
  - Dysstasia [Unknown]
  - Memory impairment [Unknown]
  - Peripheral swelling [Unknown]
  - Blood pressure abnormal [Recovering/Resolving]
  - Ear infection [Recovered/Resolved]
  - Trigger finger [Unknown]
  - Back pain [Unknown]
  - Cerebral disorder [Unknown]
  - Anxiety [Unknown]
  - Arthralgia [Unknown]
  - Dizziness [Unknown]
  - Cough [Not Recovered/Not Resolved]
  - Skin exfoliation [Not Recovered/Not Resolved]
  - Pruritus [Recovered/Resolved]
  - Lymphoedema [Unknown]
  - Cognitive disorder [Unknown]
  - Arthritis [Unknown]
  - Malaise [Recovered/Resolved]
  - Hypersensitivity [Not Recovered/Not Resolved]
  - Haemorrhoids [Unknown]
  - Osteoarthritis [Unknown]
  - Night sweats [Not Recovered/Not Resolved]
  - Stomatitis [Not Recovered/Not Resolved]
  - Weight decreased [Recovered/Resolved]
  - Sinusitis [Recovered/Resolved]
  - Abdominal discomfort [Unknown]
  - White blood cell count decreased [Not Recovered/Not Resolved]
  - Diarrhoea [Not Recovered/Not Resolved]
  - Fall [Unknown]
  - Blood glucose abnormal [Recovering/Resolving]
  - Decreased appetite [Unknown]
  - Fatigue [Not Recovered/Not Resolved]
  - Respiratory tract infection [Not Recovered/Not Resolved]
  - Blood pressure increased [Not Recovered/Not Resolved]
  - Bone pain [Unknown]
  - Exercise tolerance decreased [Unknown]
  - Food craving [Unknown]
  - Bladder discomfort [Unknown]
  - Neoplasm progression [Unknown]
  - Diverticulum [Unknown]

NARRATIVE: CASE EVENT DATE: 2017
